FAERS Safety Report 23401233 (Version 4)
Quarter: 2024Q1

REPORT INFORMATION
  Report Type: Other
  Country: US (occurrence: None)
  Receive Date: 20240115
  Receipt Date: 20240311
  Transmission Date: 20240409
  Serious: Yes (Other)
  Sender: FDA-Public Use
  Company Number: US-ROCHE-3487836

PATIENT
  Age: 73 Year
  Sex: Male
  Weight: 80.7 kg

DRUGS (22)
  1. ACTEMRA [Suspect]
     Active Substance: TOCILIZUMAB
     Indication: Systemic scleroderma
     Route: 058
  2. ACTEMRA [Suspect]
     Active Substance: TOCILIZUMAB
  3. ACTEMRA [Suspect]
     Active Substance: TOCILIZUMAB
     Indication: Rheumatoid arthritis
     Route: 058
     Dates: start: 20230403
  4. ACTEMRA [Suspect]
     Active Substance: TOCILIZUMAB
  5. ACTEMRA [Suspect]
     Active Substance: TOCILIZUMAB
     Indication: Mixed connective tissue disease
  6. ACTEMRA [Suspect]
     Active Substance: TOCILIZUMAB
  7. TYLENOL [Concomitant]
     Active Substance: ACETAMINOPHEN
  8. PROVENTIL [Concomitant]
     Active Substance: ALBUTEROL
  9. VITAMIN D3 [Concomitant]
     Active Substance: CHOLECALCIFEROL
  10. FOLVITE [Concomitant]
     Active Substance: FOLIC ACID
  11. LASIX [Concomitant]
     Active Substance: FUROSEMIDE
  12. PLAQUENIL [Concomitant]
     Active Substance: HYDROXYCHLOROQUINE SULFATE
  13. SYNTHROID [Concomitant]
     Active Substance: LEVOTHYROXINE SODIUM
  14. COZAAR [Concomitant]
     Active Substance: LOSARTAN POTASSIUM
  15. MOBIC [Concomitant]
     Active Substance: MELOXICAM
  16. METHOTREXATE [Concomitant]
     Active Substance: METHOTREXATE
  17. BACTROBAN [Concomitant]
     Active Substance: MUPIROCIN CALCIUM
  18. PRILOSEC [Concomitant]
     Active Substance: OMEPRAZOLE MAGNESIUM
  19. CRESTOR [Concomitant]
     Active Substance: ROSUVASTATIN CALCIUM
  20. CIPROFLOXACIN [Concomitant]
     Active Substance: CIPROFLOXACIN
  21. PREDNISONE [Concomitant]
     Active Substance: PREDNISONE
  22. PROAIR HFA [Concomitant]
     Active Substance: ALBUTEROL SULFATE

REACTIONS (13)
  - Pulmonary oedema [Unknown]
  - Deafness [Unknown]
  - Dysphagia [Not Recovered/Not Resolved]
  - Laryngeal oedema [Not Recovered/Not Resolved]
  - Gastrooesophageal reflux disease [Unknown]
  - Thyroid mass [Unknown]
  - Salivary gland calculus [Unknown]
  - Tinnitus [Unknown]
  - Cerumen impaction [Unknown]
  - Eustachian tube dysfunction [Unknown]
  - Spinal osteoarthritis [Unknown]
  - Pulmonary fibrosis [Unknown]
  - Chest pain [Unknown]
